FAERS Safety Report 20029646 (Version 1)
Quarter: 2021Q4

REPORT INFORMATION
  Report Type: Spontaneous
  Country: US (occurrence: US)
  Receive Date: 20211103
  Receipt Date: 20211103
  Transmission Date: 20220304
  Serious: No
  Sender: FDA-Public Use
  Company Number: US-BAYER-2021A241576

PATIENT
  Age: 18 Year
  Sex: Male

DRUGS (5)
  1. SORAFENIB [Suspect]
     Active Substance: SORAFENIB
     Indication: Acute myeloid leukaemia
     Dosage: 200 MG/M2, BID
  2. SORAFENIB [Suspect]
     Active Substance: SORAFENIB
     Indication: Acute myeloid leukaemia
     Dosage: DAILY DOSE 200 MG/M2
  3. CYTARABINE [Concomitant]
     Active Substance: CYTARABINE
     Dosage: UNK
  4. DAUNORUBICIN [Concomitant]
     Active Substance: DAUNORUBICIN
     Dosage: UNK
  5. ETOPOSIDE [Concomitant]
     Active Substance: ETOPOSIDE
     Dosage: UNK

REACTIONS (2)
  - Rash maculo-papular [None]
  - Off label use [None]
